FAERS Safety Report 25183905 (Version 1)
Quarter: 2025Q2

REPORT INFORMATION
  Report Type: Spontaneous
  Country: US (occurrence: None)
  Receive Date: 20250409
  Receipt Date: 20250409
  Transmission Date: 20250717
  Serious: No
  Sender: FDA-CTU
  Company Number: None

PATIENT
  Age: 83 Year
  Sex: Male

DRUGS (1)
  1. CEMIPLIMAB-RWLC [Suspect]
     Active Substance: CEMIPLIMAB-RWLC

REACTIONS (4)
  - Colitis [None]
  - Toxicity to various agents [None]
  - Myocarditis [None]
  - Myositis [None]

NARRATIVE: CASE EVENT DATE: 20250307
